FAERS Safety Report 4975327-5 (Version None)
Quarter: 2006Q2

REPORT INFORMATION
  Report Type: 
  Country: None (occurrence: None)
  Receive Date: 20060411
  Receipt Date: 20060322
  Transmission Date: 20061013
  Serious: Yes (Other)
  Sender: FDA-Public Use
  Company Number: S06-FRA-01352-01

PATIENT
  Age: 36 Year
  Sex: Female

DRUGS (2)
  1. SEROPLEX (ESCITALOPRAM) [Suspect]
     Indication: DEPRESSION
     Dosage: 10 MG QD PO
     Route: 048
     Dates: start: 20060107
  2. SEROPLEX (ESCITALOPRAM) [Suspect]
     Indication: DEPRESSION
     Dosage: 5 MG QD PO
     Route: 048
     Dates: end: 20060206

REACTIONS (3)
  - BREAST DISCOMFORT [None]
  - GALACTORRHOEA [None]
  - HYPERPROLACTINAEMIA [None]
